FAERS Safety Report 5668906-3 (Version None)
Quarter: 2008Q1

REPORT INFORMATION
  Report Type: 
  Country: None (occurrence: None)
  Receive Date: 20080317
  Receipt Date: 20080303
  Transmission Date: 20080703
  Serious: Yes (Other)
  Sender: FDA-Public Use
  Company Number: US-AVENTIS-200718770US

PATIENT
  Sex: Female
  Weight: 96 kg

DRUGS (18)
  1. LANTUS [Suspect]
     Route: 051
  2. LANTUS [Suspect]
     Dosage: DOSE: SCALE (TRYING FOR 35-38 U)
     Route: 051
  3. LANTUS [Suspect]
     Dosage: DOSE: 12-80 ONCE A DAY
     Route: 051
  4. OPTICLIK (INSULIN INJECTION PEN) [Suspect]
     Dates: start: 20060101
  5. ADVAIR DISKUS 100/50 [Concomitant]
     Dosage: DOSE: 250/50
  6. ACTOS [Concomitant]
     Dosage: DOSE: UNK
  7. METFORMIN [Concomitant]
  8. GABAPENTIN [Concomitant]
  9. SINGULAIR [Concomitant]
  10. NEXIUM [Concomitant]
  11. AVAPRO [Concomitant]
  12. CRESTOR [Concomitant]
  13. EFFEXOR XR [Concomitant]
  14. DIGOXIN [Concomitant]
  15. NABUMETONE [Concomitant]
  16. COMBIVENT                          /01033501/ [Concomitant]
     Dosage: DOSE: UNK
  17. ALBUTEROL [Concomitant]
     Dosage: DOSE: UNK
  18. TRICOR                             /00090101/ [Concomitant]

REACTIONS (6)
  - ACCIDENTAL OVERDOSE [None]
  - FATIGUE [None]
  - FEELING ABNORMAL [None]
  - HEART RATE INCREASED [None]
  - HYPOGLYCAEMIA [None]
  - TREMOR [None]
